FAERS Safety Report 20063947 (Version 1)
Quarter: 2021Q4

REPORT INFORMATION
  Report Type: Spontaneous
  Country: US (occurrence: None)
  Receive Date: 20211112
  Receipt Date: 20211112
  Transmission Date: 20220303
  Serious: Yes (Other)
  Sender: FDA-Public Use
  Company Number: None

PATIENT
  Age: 58 Year
  Sex: Female
  Weight: 113.4 kg

DRUGS (4)
  1. BUPROPION HYDROCHLORIDE [Suspect]
     Active Substance: BUPROPION HYDROCHLORIDE
     Indication: Seasonal affective disorder
     Dosage: FREQUENCY : DAILY;?
     Route: 048
     Dates: start: 20210609, end: 20210805
  2. BUPROPION HYDROCHLORIDE [Suspect]
     Active Substance: BUPROPION HYDROCHLORIDE
     Indication: Depression
  3. BUPROPION HYDROCHLORIDE [Suspect]
     Active Substance: BUPROPION HYDROCHLORIDE
     Indication: Anxiety
  4. BUPROPION HYDROCHLORIDE [Suspect]
     Active Substance: BUPROPION HYDROCHLORIDE
     Indication: Hypertension

REACTIONS (7)
  - Rash [None]
  - Urticaria [None]
  - Acne cystic [None]
  - Acne [None]
  - Acne [None]
  - Alopecia [None]
  - Product prescribing error [None]

NARRATIVE: CASE EVENT DATE: 20210805
